FAERS Safety Report 8249298-2 (Version None)
Quarter: 2012Q1

REPORT INFORMATION
  Report Type: 
  Country: None (occurrence: None)
  Receive Date: 20120327
  Receipt Date: 20120316
  Transmission Date: 20120608
  Serious: Yes (Death, Hospitalization, Other)
  Sender: FDA-Public Use
  Company Number: 2009AL000603

PATIENT
  Age: 78 Year
  Sex: Male
  Weight: 67.586 kg

DRUGS (58)
  1. BENZTROPINE MESYLATE [Concomitant]
  2. MIRTAZAPINE [Concomitant]
  3. ACETYLCYST [Concomitant]
  4. PLAVIX [Concomitant]
  5. COGENTIN [Concomitant]
  6. XANAX [Concomitant]
  7. FLAGYL [Concomitant]
  8. AMITRIPTYLINE HCL [Concomitant]
  9. PREVACID [Concomitant]
  10. ACETYLCYSTEINE [Concomitant]
  11. LEVAQUIN [Concomitant]
  12. LISINOPRIL [Concomitant]
  13. ACETAMINOPHEN [Concomitant]
  14. FLAGYL [Concomitant]
  15. LORTAB [Concomitant]
  16. METOPROLOL TARTRATE [Concomitant]
  17. PROTONIX [Concomitant]
  18. POTASSIUM CHLORIDE [Concomitant]
  19. KAOPECTATE [Concomitant]
  20. PHENERGAN HCL [Concomitant]
  21. COREG [Concomitant]
  22. PROAIR HFA [Concomitant]
  23. PROP-N/APAP [Concomitant]
  24. ISOSORBIDE DINITRATE [Concomitant]
  25. MAVIK [Concomitant]
  26. LOVENOX [Concomitant]
  27. DUONEB [Concomitant]
  28. ACETAMINOPHEN [Concomitant]
  29. RESTORIL [Concomitant]
  30. LACTOBACILLUS [Concomitant]
  31. RISPERDAL [Concomitant]
  32. LUNESTA [Concomitant]
  33. HYDRALAZINE HCL [Concomitant]
  34. LOPRESSOR [Concomitant]
  35. NORCO [Concomitant]
  36. IPRATROP/ALBUTEROL [Concomitant]
  37. LEXAPRO [Concomitant]
  38. REQUIP [Concomitant]
  39. CRESTOR [Concomitant]
  40. ASPIRIN [Concomitant]
  41. PRILOSEC [Concomitant]
  42. IMDUR [Concomitant]
  43. CARDIZEM [Concomitant]
  44. AMBIEN [Concomitant]
  45. DIGOXIN [Suspect]
     Indication: PRODUCT USED FOR UNKNOWN INDICATION
     Dosage: 0.125 MG;QD;PO
     Route: 048
     Dates: start: 20050825, end: 20080626
  46. HYDROCODONE BITARTRATE AND ACETAMINOPHEN [Concomitant]
  47. LASIX [Concomitant]
  48. LIDODERM [Concomitant]
  49. HALOPERIDOL [Concomitant]
  50. ALPRAZOLAM [Concomitant]
  51. DUONEB [Concomitant]
  52. FUROSEMIDE [Concomitant]
  53. TRANADOLAPRIL [Concomitant]
  54. SONATA [Concomitant]
  55. RESTORIL [Concomitant]
  56. ULTRAM [Concomitant]
  57. CELEXA [Concomitant]
  58. REMERON [Concomitant]

REACTIONS (97)
  - NAUSEA [None]
  - ABDOMINAL PAIN [None]
  - SEPSIS [None]
  - ARTERIOSCLEROSIS [None]
  - STRESS [None]
  - QRS AXIS ABNORMAL [None]
  - PERIPHERAL ARTERIAL OCCLUSIVE DISEASE [None]
  - BODY TEMPERATURE DECREASED [None]
  - TOXICITY TO VARIOUS AGENTS [None]
  - ASTHENIA [None]
  - MENTAL STATUS CHANGES [None]
  - JUGULAR VEIN DISTENSION [None]
  - CARDIAC DISORDER [None]
  - CARDIAC FAILURE CONGESTIVE [None]
  - HYPOAESTHESIA [None]
  - CHEST DISCOMFORT [None]
  - DEPRESSION [None]
  - ELECTROCARDIOGRAM PR PROLONGATION [None]
  - INCORRECT DOSE ADMINISTERED [None]
  - OEDEMA PERIPHERAL [None]
  - ORTHOPNOEA [None]
  - WHITE BLOOD CELL COUNT INCREASED [None]
  - ANXIETY [None]
  - DYSPNOEA [None]
  - DEMENTIA [None]
  - MEMORY IMPAIRMENT [None]
  - DYSPHAGIA [None]
  - LOBAR PNEUMONIA [None]
  - CEREBRAL SMALL VESSEL ISCHAEMIC DISEASE [None]
  - PLEURAL EFFUSION [None]
  - PAIN [None]
  - HEPATOJUGULAR REFLUX [None]
  - FATIGUE [None]
  - AGGRESSION [None]
  - MUSCULAR WEAKNESS [None]
  - CONFUSIONAL STATE [None]
  - ACTIVITIES OF DAILY LIVING IMPAIRED [None]
  - FEAR [None]
  - DECREASED ACTIVITY [None]
  - DEPENDENT RUBOR [None]
  - CARDIOMEGALY [None]
  - ENCEPHALOMALACIA [None]
  - ACQUIRED DIAPHRAGMATIC EVENTRATION [None]
  - VENOUS PRESSURE JUGULAR INCREASED [None]
  - RENAL FAILURE [None]
  - BLOOD PRESSURE DIASTOLIC DECREASED [None]
  - COUGH [None]
  - PLATELET COUNT DECREASED [None]
  - MULTIPLE INJURIES [None]
  - PSYCHOTIC DISORDER [None]
  - ACUTE CHEST SYNDROME [None]
  - DIARRHOEA [None]
  - GAIT DISTURBANCE [None]
  - VENOUS INSUFFICIENCY [None]
  - POOR QUALITY SLEEP [None]
  - ARTERIAL DISORDER [None]
  - PULMONARY CONGESTION [None]
  - FEMORAL ARTERY OCCLUSION [None]
  - SPIDER VEIN [None]
  - RESPIRATORY RATE INCREASED [None]
  - SOCIAL PROBLEM [None]
  - ABNORMAL FAECES [None]
  - CLOSTRIDIUM DIFFICILE COLITIS [None]
  - PERIPHERAL VASCULAR DISORDER [None]
  - PAIN IN EXTREMITY [None]
  - ARTHRALGIA [None]
  - CAROTID ARTERY STENOSIS [None]
  - PULSE PRESSURE DECREASED [None]
  - ATRIOVENTRICULAR BLOCK FIRST DEGREE [None]
  - CAROTID ARTERIOSCLEROSIS [None]
  - CAROTID BRUIT [None]
  - LIMB CRUSHING INJURY [None]
  - DYSARTHRIA [None]
  - DEHYDRATION [None]
  - BRONCHITIS [None]
  - DECREASED APPETITE [None]
  - NEURALGIA [None]
  - VARICOSE VEIN [None]
  - EXOSTOSIS [None]
  - CARDIOVASCULAR DISORDER [None]
  - CEREBRAL ATROPHY [None]
  - PARANASAL CYST [None]
  - SPINAL OSTEOARTHRITIS [None]
  - ELECTROCARDIOGRAM QT PROLONGED [None]
  - DIABETIC NEUROPATHY [None]
  - HEART RATE INCREASED [None]
  - CAFE AU LAIT SPOTS [None]
  - DYSPNOEA EXERTIONAL [None]
  - INTERMITTENT CLAUDICATION [None]
  - PULSE ABSENT [None]
  - SINUS POLYP [None]
  - LUNG NEOPLASM [None]
  - EFFUSION [None]
  - HEART RATE DECREASED [None]
  - CARDIAC MURMUR [None]
  - WEIGHT INCREASED [None]
  - CENTRAL OBESITY [None]
